FAERS Safety Report 7654724-3 (Version None)
Quarter: 2011Q3

REPORT INFORMATION
  Report Type: 
  Country: None (occurrence: None)
  Receive Date: 20110804
  Receipt Date: 20110728
  Transmission Date: 20111222
  Serious: No
  Sender: FDA-Public Use
  Company Number: US-BIOGENIDEC-2010BI012219

PATIENT
  Sex: Female

DRUGS (2)
  1. TYSABRI [Suspect]
     Route: 042
     Dates: start: 20110101
  2. TYSABRI [Suspect]
     Indication: MULTIPLE SCLEROSIS
     Route: 042
     Dates: start: 20091216, end: 20110101

REACTIONS (21)
  - OSTEOARTHRITIS [None]
  - CENTRAL VENOUS CATHETERISATION [None]
  - HEARING IMPAIRED [None]
  - FATIGUE [None]
  - HYPOTENSION [None]
  - MOBILITY DECREASED [None]
  - PAIN [None]
  - DISTURBANCE IN ATTENTION [None]
  - FEELING COLD [None]
  - FALL [None]
  - MEMORY IMPAIRMENT [None]
  - JOINT LOCK [None]
  - DEPRESSION [None]
  - HOT FLUSH [None]
  - ASTHENIA [None]
  - POOR VENOUS ACCESS [None]
  - MENISCUS LESION [None]
  - LIGAMENT RUPTURE [None]
  - DYSSTASIA [None]
  - HEADACHE [None]
  - SPINAL COLUMN STENOSIS [None]
